FAERS Safety Report 17133137 (Version 2)
Quarter: 2020Q1

REPORT INFORMATION
  Report Type: Spontaneous
  Country: US (occurrence: US)
  Receive Date: 20191210
  Receipt Date: 20200108
  Transmission Date: 20200409
  Serious: Yes (Other)
  Sender: FDA-Public Use
  Company Number: US-LUPIN PHARMACEUTICALS INC.-2019-08046

PATIENT
  Age: 77 Year
  Sex: Female
  Weight: 54 kg

DRUGS (1)
  1. CEFUROXIME AXETIL TABLETS USP, 500 MG [Suspect]
     Active Substance: CEFUROXIME AXETIL
     Indication: SINUSITIS
     Dosage: 500 MILLIGRAM, BID
     Route: 048
     Dates: start: 20191126, end: 20191126

REACTIONS (4)
  - Wrong technique in product usage process [Unknown]
  - Product taste abnormal [Unknown]
  - Urinary retention [Not Recovered/Not Resolved]
  - Product use complaint [Unknown]

NARRATIVE: CASE EVENT DATE: 20191126
